FAERS Safety Report 7644216-X (Version None)
Quarter: 2011Q3

REPORT INFORMATION
  Report Type: 
  Country: None (occurrence: None)
  Receive Date: 20110729
  Receipt Date: 20080721
  Transmission Date: 20111222
  Serious: Yes (Death, Hospitalization, Other)
  Sender: FDA-Public Use
  Company Number: US-BAYER-200925003NA

PATIENT
  Age: 48 Year
  Sex: Male
  Weight: 84 kg

DRUGS (21)
  1. TRASYLOL [Suspect]
     Indication: COX-MAZE PROCEDURE
     Dosage: 50 ML/HR
     Route: 042
     Dates: start: 20060710, end: 20060710
  2. PENICILLIN V POTASSIUM [Concomitant]
     Dosage: 250 MG, 1 TABLET, BID
     Route: 048
  3. TRASYLOL [Suspect]
     Indication: CORONARY ARTERY BYPASS
     Dosage: TEST DOSE
     Route: 042
     Dates: start: 20060710, end: 20060710
  4. PROTONIX [Concomitant]
     Dosage: 40 MG, QS
     Route: 048
  5. HEPARIN [Concomitant]
     Dosage: 1250 U, UNK
     Route: 042
     Dates: start: 20060710
  6. FENTANYL [Concomitant]
     Dosage: UNK
     Route: 042
     Dates: start: 20060710
  7. POTASSIUM CHLORIDE [Concomitant]
     Dosage: 20 MEQ, 2 TABLETS, BID
     Route: 048
  8. POTASSIUM CHLORIDE [Concomitant]
     Dosage: 20 MEQ, UNK
     Route: 042
     Dates: start: 20060710
  9. SYNTHROID [Concomitant]
     Dosage: 112MCGG/ONCE A DAY
     Route: 048
  10. TRASYLOL [Suspect]
     Indication: HIGH FREQUENCY ABLATION
  11. ACETYLSALICYLIC ACID SRT [Concomitant]
     Dosage: 81 MG, QD
     Route: 048
  12. VANCOMYCIN [Concomitant]
     Dosage: 500 MG, UNK
     Route: 042
     Dates: start: 20060710
  13. KEFZOL [Concomitant]
     Indication: ANTIBIOTIC PROPHYLAXIS
     Dosage: 1 G, UNK
     Route: 042
     Dates: start: 20060710
  14. LASIX [Concomitant]
     Dosage: 80 MG=8ML ONCE
     Route: 042
     Dates: start: 20060708, end: 20060708
  15. LIPITOR [Concomitant]
     Dosage: 40 MG, QD
     Route: 048
  16. TRASYLOL [Suspect]
     Indication: AORTIC VALVE REPLACEMENT
     Dosage: 2 KIU, ONCE LOADING DOSE
     Route: 042
     Dates: start: 20060710, end: 20060710
  17. AVANDIA [Concomitant]
     Dosage: 4 MG, 1 TABLET, BID
     Route: 048
  18. METOPROLOL TARTRATE [Concomitant]
     Dosage: 25 MG, BID
     Route: 048
  19. LASIX [Concomitant]
     Dosage: UNK
     Route: 042
     Dates: start: 20060710
  20. VERSED [Concomitant]
     Dosage: UNK
     Route: 042
     Dates: start: 20060710
  21. PROTAMINE [Concomitant]
     Dosage: 380 MG, UNK
     Route: 042
     Dates: start: 20060710

REACTIONS (11)
  - RENAL FAILURE [None]
  - PAIN [None]
  - STRESS [None]
  - ANXIETY [None]
  - EMOTIONAL DISTRESS [None]
  - HYPOXIC-ISCHAEMIC ENCEPHALOPATHY [None]
  - RENAL INJURY [None]
  - FEAR [None]
  - MULTI-ORGAN FAILURE [None]
  - RENAL IMPAIRMENT [None]
  - INJURY [None]
